FAERS Safety Report 9459067 (Version 4)
Quarter: 2014Q1

REPORT INFORMATION
  Report Type: Spontaneous
  Country: FR (occurrence: FR)
  Receive Date: 20130814
  Receipt Date: 20140116
  Transmission Date: 20141002
  Serious: Yes (Hospitalization, Other)
  Sender: FDA-Public Use
  Company Number: FR-TEVA-423462ISR

PATIENT
  Age: 35 Year
  Sex: Female
  Weight: 58 kg

DRUGS (7)
  1. COPAXONE [Suspect]
     Indication: RELAPSING-REMITTING MULTIPLE SCLEROSIS
     Dates: start: 20130718
  2. VESICARE [Concomitant]
     Indication: INCONTINENCE
     Dates: start: 2011
  3. OMEXEL [Concomitant]
     Indication: INCONTINENCE
     Dates: start: 2011
  4. SPAGULAX [Concomitant]
     Indication: CONSTIPATION
  5. TRANSIPEG [Concomitant]
     Indication: CONSTIPATION
  6. LAROXYL [Concomitant]
     Indication: SLEEP DISORDER
     Dosage: 25 MILLIGRAM DAILY; ON EVENING
  7. LEELOO [Concomitant]
     Indication: CONTRACEPTION

REACTIONS (7)
  - Multiple sclerosis relapse [Unknown]
  - VIIth nerve paralysis [Not Recovered/Not Resolved]
  - Paraesthesia [Unknown]
  - Toothache [Unknown]
  - Hypokalaemia [Unknown]
  - Hypocalcaemia [Unknown]
  - Blepharospasm [Unknown]
